FAERS Safety Report 6700088-9 (Version None)
Quarter: 2010Q2

REPORT INFORMATION
  Report Type: 
  Country: None (occurrence: None)
  Receive Date: 20100427
  Receipt Date: 20100427
  Transmission Date: 20101027
  Serious: Yes (Hospitalization, Other)
  Sender: FDA-Public Use
  Company Number: None

PATIENT
  Sex: Female
  Weight: 79.3795 kg

DRUGS (1)
  1. PTU N/A N/A [Suspect]
     Indication: HYPERTHYROIDISM

REACTIONS (10)
  - ABORTION INDUCED [None]
  - CARDIAC FAILURE ACUTE [None]
  - CARDIAC FAILURE CONGESTIVE [None]
  - CARDIOMYOPATHY [None]
  - DRUG EXPOSURE DURING PREGNANCY [None]
  - HEPATIC FUNCTION ABNORMAL [None]
  - INFERTILITY FEMALE [None]
  - OEDEMA [None]
  - RENAL DISORDER [None]
  - SCAR [None]
